FAERS Safety Report 9051212 (Version 2)
Quarter: 2013Q1

REPORT INFORMATION
  Report Type: Spontaneous
  Country: ES (occurrence: ES)
  Receive Date: 20130206
  Receipt Date: 20130227
  Transmission Date: 20140127
  Serious: Yes (Hospitalization)
  Sender: FDA-Public Use
  Company Number: ES-SANOFI-AVENTIS-2013SA008876

PATIENT
  Age: 90 Year
  Sex: Female

DRUGS (6)
  1. CLEXANE [Suspect]
     Indication: ATRIAL FIBRILLATION
     Dosage: PRE FILLED SYRINGE
     Route: 058
     Dates: start: 201110, end: 20120530
  2. CITALOPRAM [Interacting]
     Indication: PRODUCT USED FOR UNKNOWN INDICATION
     Route: 048
     Dates: start: 200910
  3. DIGOXIN [Concomitant]
     Indication: ATRIAL FIBRILLATION
     Route: 048
     Dates: start: 200909
  4. LISINOPRIL [Concomitant]
     Indication: HYPERTENSION
     Route: 048
     Dates: start: 201107, end: 20120530
  5. SEGURIL [Concomitant]
     Indication: RENAL FAILURE CHRONIC
     Dosage: 40 MG TABLETS, 10 TABLETS S
     Route: 048
     Dates: start: 200909
  6. LEVOTHROID [Concomitant]
     Indication: HYPOTHYROIDISM
     Dosage: 100 MICROGRAMO S TABLETS, 50 TABLETS
     Route: 048

REACTIONS (2)
  - Muscle haemorrhage [Recovered/Resolved]
  - Drug interaction [Unknown]
